FAERS Safety Report 6253345-7 (Version None)
Quarter: 2009Q3

REPORT INFORMATION
  Report Type: 
  Country: None (occurrence: None)
  Receive Date: 20090701
  Receipt Date: 20090619
  Transmission Date: 20100115
  Serious: Yes (Hospitalization)
  Sender: FDA-Public Use
  Company Number: PHHY2009RO24691

PATIENT
  Age: 60 Year
  Sex: Male

DRUGS (2)
  1. CARBAMAZEPINE [Suspect]
     Indication: BIPOLAR DISORDER
     Dosage: UNK
  2. NSAID'S [Concomitant]

REACTIONS (8)
  - BODY TEMPERATURE INCREASED [None]
  - EOSINOPHILIA [None]
  - LYMPHOCYTOSIS [None]
  - PRURITUS [None]
  - RASH ERYTHEMATOUS [None]
  - RASH MACULO-PAPULAR [None]
  - SKIN LESION [None]
  - TREATMENT NONCOMPLIANCE [None]
